FAERS Safety Report 17949507 (Version 1)
Quarter: 2020Q2

REPORT INFORMATION
  Report Type: Spontaneous
  Country: PL (occurrence: PL)
  Receive Date: 20200625
  Receipt Date: 20200625
  Transmission Date: 20200714
  Serious: Yes (Hospitalization)
  Sender: FDA-Public Use
  Company Number: PL-TAKEDA-2020TUS027768

PATIENT
  Age: 72 Year
  Sex: Female
  Weight: 44.2 kg

DRUGS (1)
  1. VELCADE [Suspect]
     Active Substance: BORTEZOMIB
     Indication: PRODUCT USED FOR UNKNOWN INDICATION
     Dosage: 1.81 MILLIGRAM
     Route: 058
     Dates: start: 20170822, end: 20170822

REACTIONS (4)
  - Pneumonitis [Recovering/Resolving]
  - Liver injury [Recovering/Resolving]
  - Hepatitis [Recovering/Resolving]
  - Pulmonary oedema [Recovering/Resolving]

NARRATIVE: CASE EVENT DATE: 20170824
